FAERS Safety Report 5494090-5 (Version None)
Quarter: 2007Q4

REPORT INFORMATION
  Report Type: 
  Country: None (occurrence: None)
  Receive Date: 20071022
  Receipt Date: 20071015
  Transmission Date: 20080405
  Serious: Yes (Other)
  Sender: FDA-Public Use
  Company Number: CHPA2007US10828

PATIENT
  Age: 3 Year
  Sex: Female

DRUGS (2)
  1. TRIAMINIC COLD + ALLERGY ORANGE (NCH)(CHLORPHENIRAMINE MALEATE, PSEUDO [Suspect]
     Indication: HYPERSENSITIVITY
  2. GUAIFENESIN [Suspect]

REACTIONS (1)
  - CONVULSION [None]
